FAERS Safety Report 5143662-6 (Version None)
Quarter: 2006Q4

REPORT INFORMATION
  Report Type: 
  Country: None (occurrence: None)
  Receive Date: 20061103
  Receipt Date: 20061030
  Transmission Date: 20070319
  Serious: Yes (Hospitalization)
  Sender: FDA-Public Use
  Company Number: DE-BOEHRINGER INGELHEIM PHARMACEUTICALS, INC.-2006-DE-05742DE

PATIENT
  Sex: Female

DRUGS (1)
  1. MIRAPEXIN [Suspect]
     Indication: RESTLESS LEGS SYNDROME

REACTIONS (5)
  - DIZZINESS [None]
  - NAUSEA [None]
  - SUDDEN ONSET OF SLEEP [None]
  - VOMITING [None]
  - WEIGHT DECREASED [None]
